FAERS Safety Report 20352054 (Version 8)
Quarter: 2023Q2

REPORT INFORMATION
  Report Type: Report from Study
  Country: BE (occurrence: BE)
  Receive Date: 20220119
  Receipt Date: 20230518
  Transmission Date: 20230721
  Serious: Yes (Other)
  Sender: FDA-Public Use
  Company Number: BE-IPSEN Group, Research and Development-2020-20596

PATIENT

DRUGS (24)
  1. CABOZANTINIB [Suspect]
     Active Substance: CABOZANTINIB
     Indication: Renal cell carcinoma
     Dosage: 60 MG, QD
     Route: 048
     Dates: start: 20201005, end: 20201029
  2. CABOZANTINIB [Suspect]
     Active Substance: CABOZANTINIB
     Dosage: 40 MG, QD
     Route: 048
     Dates: start: 20201030, end: 20220114
  3. Mobiflex [Concomitant]
     Dosage: 1X/D 1CO
     Route: 048
  4. TIBOLONE [Concomitant]
     Active Substance: TIBOLONE
     Dosage: 2.5 MG, 2X/D 0.5CO
     Route: 048
  5. PANTOPRAZOLE [Concomitant]
     Active Substance: PANTOPRAZOLE
     Dosage: 20 MG, 1X/D 1CO
     Route: 048
  6. ASPIRIN [Concomitant]
     Active Substance: ASPIRIN
     Dosage: 80 MG, 1X/1D 1CO
     Route: 048
  7. NEBIVOLOL [Concomitant]
     Active Substance: NEBIVOLOL
     Dosage: 5 MG, 1X/1D 0.5CO
     Route: 048
  8. LECANIDIPINE [Concomitant]
     Dosage: 10 MG, 1X/1D 0.5CO
     Route: 048
  9. ACETAMINOPHEN [Concomitant]
     Active Substance: ACETAMINOPHEN
     Dosage: 1 G, AS NEEDED
     Route: 048
  10. CALCIUM CARBONATE\CHOLECALCIFEROL [Concomitant]
     Active Substance: CALCIUM CARBONATE\CHOLECALCIFEROL
     Dosage: 1X/D 1CO
     Route: 048
  11. POLYETHYLENE GLYCOL 3350\POTASSIUM CHLORIDE\SODIUM BICARBONATE\SODIUM [Concomitant]
     Active Substance: POLYETHYLENE GLYCOL 3350\POTASSIUM CHLORIDE\SODIUM BICARBONATE\SODIUM CHLORIDE
     Dosage: 13.8 G 1X/D
     Route: 048
  12. XGEVA [Concomitant]
     Active Substance: DENOSUMAB
     Dosage: 70 MG/ML 1X/MONTH (ON HOLD DUE TO PERIODONTITIS)
     Route: 058
  13. XGEVA [Concomitant]
     Active Substance: DENOSUMAB
     Dosage: 70 MG/ML 1X/MONTH (ON HOLD DUE TO PERIODONTITIS)
     Route: 058
  14. INNOHEP [Concomitant]
     Active Substance: TINZAPARIN SODIUM
     Dosage: 10000IE, 1X/D
     Route: 058
  15. INNOHEP [Concomitant]
     Active Substance: TINZAPARIN SODIUM
     Dosage: 10000IE, 1X/D
     Route: 058
  16. FOLIC ACID [Concomitant]
     Active Substance: FOLIC ACID
     Dosage: 4 MG 1X/DAY
     Route: 048
  17. DOMPERIDONE [Concomitant]
     Active Substance: DOMPERIDONE
     Dosage: 10 MG, 3X/D
     Route: 048
  18. URI-CRAN FORTE [Concomitant]
     Dosage: 1X/D 1CO
     Route: 048
  19. AMOXICILLIN [Concomitant]
     Active Substance: AMOXICILLIN
     Indication: Urinary tract infection
     Dosage: 875 MG, 3X/D 1CO
  20. CALCIUM/VIT D3 SANDOZ [Concomitant]
     Dosage: 1000 MG/880IE (1X/D 1CO)
     Route: 048
  21. FLECAINIDE RETARD [Concomitant]
     Dosage: 150 MG, 1X/D
     Route: 048
  22. VISTA B-12 [Concomitant]
     Dosage: 600 MG 1X/D
     Route: 048
  23. SULFAMETHOXAZOLE\TRIMETHOPRIM [Concomitant]
     Active Substance: SULFAMETHOXAZOLE\TRIMETHOPRIM
     Indication: Sinusitis
     Dosage: UNKNOWN
     Route: 048
     Dates: start: 20210423, end: 20210430
  24. SULFAMETHOXAZOLE\TRIMETHOPRIM [Concomitant]
     Active Substance: SULFAMETHOXAZOLE\TRIMETHOPRIM
     Indication: Urinary tract infection

REACTIONS (35)
  - General physical health deterioration [Not Recovered/Not Resolved]
  - Atrial fibrillation [Recovered/Resolved]
  - Periodontitis [Recovered/Resolved]
  - Alopecia [Not Recovered/Not Resolved]
  - Eosinophilia [Recovered/Resolved]
  - Eosinophilia [Recovered/Resolved]
  - Lymphocyte count increased [Recovered/Resolved]
  - Hyperkalaemia [Recovered/Resolved]
  - Hyperkalaemia [Recovered/Resolved]
  - Dysgeusia [Not Recovered/Not Resolved]
  - Hypoalbuminaemia [Recovered/Resolved]
  - Hypoalbuminaemia [Recovered/Resolved]
  - Hyponatraemia [Not Recovered/Not Resolved]
  - Anaemia [Not Recovered/Not Resolved]
  - Diarrhoea [Recovered/Resolved]
  - Stomatitis [Recovered/Resolved]
  - Weight decreased [Recovered/Resolved]
  - Hypophosphataemia [Recovered/Resolved]
  - Fatigue [Not Recovered/Not Resolved]
  - Platelet count decreased [Recovered/Resolved]
  - Hypothyroidism [Recovered/Resolved]
  - Palmar-plantar erythrodysaesthesia syndrome [Not Recovered/Not Resolved]
  - Neutropenia [Recovered/Resolved]
  - Diarrhoea [Not Recovered/Not Resolved]
  - Hypomagnesaemia [Recovered/Resolved]
  - Hypomagnesaemia [Recovered/Resolved]
  - Hypocalcaemia [Recovered/Resolved]
  - Hypocalcaemia [Recovered/Resolved]
  - Hypothyroidism [Recovered/Resolved]
  - Hypocalcaemia [Not Recovered/Not Resolved]
  - Hypothyroidism [Recovered/Resolved]
  - Hypomagnesaemia [Recovered/Resolved]
  - Nausea [Not Recovered/Not Resolved]
  - Decreased appetite [Not Recovered/Not Resolved]
  - Hypophosphataemia [Recovered/Resolved]

NARRATIVE: CASE EVENT DATE: 20201010
